FAERS Safety Report 4848818-5 (Version None)
Quarter: 2005Q4

REPORT INFORMATION
  Report Type: 
  Country: None (occurrence: None)
  Receive Date: 20051115
  Receipt Date: 20050808
  Transmission Date: 20060501
  Serious: Yes (Other)
  Sender: FDA-Public Use
  Company Number: 403815

PATIENT
  Age: 52 Year
  Sex: Male
  Weight: 84.4 kg

DRUGS (4)
  1. PEGASYS [Suspect]
     Indication: HEPATITIS C VIRUS
     Dosage: 180 MCG 1 PER WEEK SUBCUTANEOUS
     Route: 058
     Dates: start: 20050310, end: 20050503
  2. COPEGUS [Suspect]
     Indication: HEPATITIS C VIRUS
     Dosage: 600 MG 2 PER DAY ORAL
     Route: 048
     Dates: start: 20050310, end: 20050503
  3. PAXIL [Concomitant]
  4. SYNTHROID [Concomitant]

REACTIONS (3)
  - WEIGHT DECREASED [None]
  - WHITE BLOOD CELL COUNT DECREASED [None]
  - WHITE BLOOD CELL COUNT INCREASED [None]
